FAERS Safety Report 9142713 (Version 1)
Quarter: 2013Q1

REPORT INFORMATION
  Report Type: Spontaneous
  Country: US (occurrence: US)
  Receive Date: 20130306
  Receipt Date: 20130306
  Transmission Date: 20140127
  Serious: No
  Sender: FDA-Public Use
  Company Number: US-ENDO PHARMACEUTICALS INC.-OPCR20122121

PATIENT
  Sex: Female

DRUGS (4)
  1. OPANA ER 20MG [Suspect]
     Indication: PAIN
     Route: 048
     Dates: start: 201211
  2. OPANA [Suspect]
     Indication: BREAKTHROUGH PAIN
     Route: 048
     Dates: start: 201211
  3. MORPHINE SULFATE [Concomitant]
     Indication: PAIN
     Dosage: 30 MG
     Route: 048
     Dates: end: 201211
  4. OXYCODONE HCL [Concomitant]
     Indication: PAIN
     Dosage: 20 MG
     Route: 048
     Dates: end: 201211

REACTIONS (4)
  - Urinary tract infection [Not Recovered/Not Resolved]
  - Bladder spasm [Not Recovered/Not Resolved]
  - Urinary retention [Not Recovered/Not Resolved]
  - Drug ineffective [Not Recovered/Not Resolved]
